FAERS Safety Report 4595099-6 (Version None)
Quarter: 2005Q1

REPORT INFORMATION
  Report Type: 
  Country: None (occurrence: None)
  Receive Date: 20050223
  Receipt Date: 20050211
  Transmission Date: 20050727
  Serious: Yes (Hospitalization)
  Sender: FDA-Public Use
  Company Number: 6013048

PATIENT
  Age: 79 Year
  Sex: Male

DRUGS (6)
  1. CARDENSIEL (TABLETS) (BISOPROLOL) [Suspect]
     Dosage: 1 DOSAGE FORMS (1 DOSAGE FORMS, 1 IN 1 D) ORAL
     Route: 048
  2. KARDEGIC (ACETYLSALICYLATE LYSINE) [Suspect]
     Dosage: 75 MG (1 D) ORAL
     Route: 048
  3. AMARYL [Suspect]
     Dosage: 3 MG (1 D) ORAL
     Route: 048
  4. NEXIUM [Suspect]
     Dosage: 1 DOSAGE FORMS (1 DOSAGE FORMS, 1 IN 1 D) ORAL
     Route: 048
  5. ZOCOR [Suspect]
     Dosage: ORAL
     Route: 048
  6. LASILIX (40 MG, TABLETS) (FUROSEMIDE) [Suspect]
     Dosage: ORAL
     Route: 048

REACTIONS (4)
  - DIARRHOEA [None]
  - DUODENAL ULCER [None]
  - NAUSEA [None]
  - VOMITING [None]
